FAERS Safety Report 8230845-1 (Version None)
Quarter: 2012Q1

REPORT INFORMATION
  Report Type: 
  Country: None (occurrence: None)
  Receive Date: 20120323
  Receipt Date: 20120314
  Transmission Date: 20120608
  Serious: Yes (Life-Threatening, Other)
  Sender: FDA-Public Use
  Company Number: MX-SANOFI-AVENTIS-2012SA017697

PATIENT
  Age: 67 Year
  Sex: Female
  Weight: 82 kg

DRUGS (6)
  1. AMARYL [Suspect]
     Indication: TYPE 2 DIABETES MELLITUS
     Route: 048
     Dates: start: 20080101
  2. LANTUS [Suspect]
     Route: 058
     Dates: start: 20110101
  3. LANTUS [Suspect]
     Indication: TYPE 2 DIABETES MELLITUS
     Route: 058
     Dates: start: 20080101, end: 20110101
  4. VERAPAMIL [Concomitant]
     Dosage: STRENGTH: 40MG
     Route: 048
     Dates: start: 20060101
  5. VENASTAT [Concomitant]
     Indication: VENOUS INSUFFICIENCY
     Dosage: STRENGTH: 265MG
     Route: 048
  6. PLAVIX [Concomitant]
     Indication: THROMBOSIS PROPHYLAXIS
     Dosage: STRENGTH: 75MG
     Route: 048
     Dates: start: 20070101

REACTIONS (5)
  - INTERVERTEBRAL DISC PROTRUSION [None]
  - HYPERGLYCAEMIA [None]
  - PAIN [None]
  - HYPOGLYCAEMIA [None]
  - MUSCLE SPASMS [None]
